FAERS Safety Report 21831751 (Version 3)
Quarter: 2025Q1

REPORT INFORMATION
  Report Type: Report from Study
  Country: US (occurrence: US)
  Receive Date: 20230106
  Receipt Date: 20250328
  Transmission Date: 20250408
  Serious: Yes (Hospitalization, Other)
  Sender: JOHNSON AND JOHNSON
  Company Number: US-JNJFOC-20230104097

PATIENT
  Age: 77 Year
  Sex: Female

DRUGS (32)
  1. MACITENTAN [Suspect]
     Active Substance: MACITENTAN
     Indication: Pulmonary arterial hypertension
     Route: 048
     Dates: start: 20221213, end: 20221221
  2. SOTATERCEPT [Suspect]
     Active Substance: SOTATERCEPT
  3. TREPROSTINIL [Suspect]
     Active Substance: TREPROSTINIL
     Indication: Pulmonary arterial hypertension
     Route: 048
     Dates: start: 20240110
  4. SODIUM BICARBONATE [Concomitant]
     Active Substance: SODIUM BICARBONATE
  5. ROSUVASTATIN CALCIUM [Concomitant]
     Active Substance: ROSUVASTATIN CALCIUM
  6. LEFLUNOMIDE [Concomitant]
     Active Substance: LEFLUNOMIDE
  7. FOLIC ACID [Concomitant]
     Active Substance: FOLIC ACID
  8. CARBOXYMETHYLCELLULOSE SODIUM [Concomitant]
     Active Substance: CARBOXYMETHYLCELLULOSE SODIUM
  9. IMODIUM [Concomitant]
     Active Substance: LOPERAMIDE HYDROCHLORIDE
  10. TYLENOL 8HR [Concomitant]
     Active Substance: ACETAMINOPHEN
  11. DICLOFENAC [Concomitant]
     Active Substance: DICLOFENAC
  12. MUPIROCIN [Concomitant]
     Active Substance: MUPIROCIN
  13. ALLOPURINOL [Concomitant]
     Active Substance: ALLOPURINOL
  14. DESOXIMETASONE [Concomitant]
     Active Substance: DESOXIMETASONE
  15. ELIQUIS [Concomitant]
     Active Substance: APIXABAN
  16. GABAPENTIN [Concomitant]
     Active Substance: GABAPENTIN
  17. LORATADINE [Concomitant]
     Active Substance: LORATADINE
  18. DILTIAZEM [Concomitant]
     Active Substance: DILTIAZEM
  19. LOPERAMIDE HYDROCHLORIDE [Concomitant]
     Active Substance: LOPERAMIDE HYDROCHLORIDE
  20. OXYGEN [Concomitant]
     Active Substance: OXYGEN
  21. MONTELUKAST SODIUM [Concomitant]
     Active Substance: MONTELUKAST SODIUM
  22. VITAMIN D3 [Concomitant]
     Active Substance: CHOLECALCIFEROL
  23. ALKALOL [Concomitant]
  24. NYSTATIN [Concomitant]
     Active Substance: NYSTATIN
  25. ALBUTEROL [Concomitant]
     Active Substance: ALBUTEROL
  26. ASPIRIN [Concomitant]
     Active Substance: ASPIRIN
  27. POTASSIUM CHLORIDE [Concomitant]
     Active Substance: POTASSIUM CHLORIDE
  28. TORSEMIDE [Concomitant]
     Active Substance: TORSEMIDE
  29. MUCINEX [Concomitant]
     Active Substance: GUAIFENESIN
  30. ONDANSETRON [Concomitant]
     Active Substance: ONDANSETRON
  31. XANAX [Concomitant]
     Active Substance: ALPRAZOLAM
  32. FUROSEMIDE ACCORD [FUROSEMIDE] [Concomitant]

REACTIONS (6)
  - Pharyngeal swelling [Recovered/Resolved]
  - Lip swelling [Recovered/Resolved]
  - Pruritus [Recovered/Resolved]
  - Urticaria [Recovered/Resolved]
  - Wound infection [Recovered/Resolved]
  - Blood test abnormal [Unknown]

NARRATIVE: CASE EVENT DATE: 20221217
